FAERS Safety Report 4306968-6 (Version None)
Quarter: 2004Q1

REPORT INFORMATION
  Report Type: 
  Country: None (occurrence: None)
  Receive Date: 20040225
  Receipt Date: 20040204
  Transmission Date: 20041129
  Serious: Yes (Hospitalization)
  Sender: FDA-Public Use
  Company Number: JP_030801654

PATIENT
  Age: 55 Year
  Sex: Male
  Weight: 53 kg

DRUGS (8)
  1. ZYPREXA [Suspect]
     Indication: SCHIZOPHRENIA, RESIDUAL TYPE
     Dosage: 10 MG/DAY
     Dates: start: 20030210
  2. LULLAN (PEROSPIRONE HYDROCHLORIDE) [Concomitant]
  3. DEPAS (ETIZOLAM) [Concomitant]
  4. SETOUS (ZOTEPINE) [Concomitant]
  5. NITRAZEPAM [Concomitant]
  6. ISOMYTAL (AMOBARBITAL) [Concomitant]
  7. BROVARIN (BROMISOVAL) [Concomitant]
  8. PICOBEN (SODIUM PICOSULFATE) [Concomitant]

REACTIONS (4)
  - BLOOD GLUCOSE INCREASED [None]
  - DEPRESSED LEVEL OF CONSCIOUSNESS [None]
  - HYPOCHLORAEMIA [None]
  - HYPONATRAEMIA [None]
